FAERS Safety Report 16239993 (Version 2)
Quarter: 2019Q3

REPORT INFORMATION
  Report Type: Spontaneous
  Country: US (occurrence: US)
  Receive Date: 20190425
  Receipt Date: 20190722
  Transmission Date: 20191004
  Serious: No
  Sender: FDA-Public Use
  Company Number: US-ALLERGAN-1845467US

PATIENT
  Age: 64 Year
  Sex: Male

DRUGS (1)
  1. TRELSTAR [Suspect]
     Active Substance: TRIPTORELIN PAMOATE
     Indication: BLOOD TESTOSTERONE DECREASED
     Dosage: 22 MG, SINGLE
     Route: 051
     Dates: start: 20180312

REACTIONS (2)
  - Prostatic specific antigen increased [Not Recovered/Not Resolved]
  - Blood testosterone abnormal [Not Recovered/Not Resolved]

NARRATIVE: CASE EVENT DATE: 20180312
